FAERS Safety Report 5705683-1 (Version None)
Quarter: 2008Q2

REPORT INFORMATION
  Report Type: 
  Country: None (occurrence: None)
  Receive Date: 20080411
  Receipt Date: 20080331
  Transmission Date: 20081010
  Serious: Yes (Other)
  Sender: FDA-Public Use
  Company Number: SPV1-2008-00740

PATIENT
  Age: 75 Year
  Sex: Female
  Weight: 58 kg

DRUGS (6)
  1. FOSRENOL [Suspect]
     Indication: RENAL FAILURE CHRONIC
     Dosage: 1000 MG, 3X/DAY:TID, ORAL; 750 MG, 3X/DAY:TID, ORAL
     Route: 048
     Dates: start: 20080307, end: 20080316
  2. FOSRENOL [Suspect]
     Indication: RENAL FAILURE CHRONIC
     Dosage: 1000 MG, 3X/DAY:TID, ORAL; 750 MG, 3X/DAY:TID, ORAL
     Route: 048
     Dates: start: 20080317, end: 20080321
  3. WARFARIN SODIUM [Suspect]
     Indication: ATRIAL FIBRILLATION
     Dosage: ORAL
     Route: 048
     Dates: start: 20050101, end: 20080321
  4. ATENOLOL [Concomitant]
  5. HEPARIN [Concomitant]
  6. VITAMINS /00067501/ (ASCORBIC ACID, ERGOCALICIFEROL, NICOTINAMIDE, RET [Concomitant]

REACTIONS (2)
  - FAECAL INCONTINENCE [None]
  - GASTROINTESTINAL HAEMORRHAGE [None]
